FAERS Safety Report 8294298-X (Version None)
Quarter: 2012Q2

REPORT INFORMATION
  Report Type: 
  Country: None (occurrence: None)
  Receive Date: 20120418
  Receipt Date: 20120412
  Transmission Date: 20120825
  Serious: Yes (Hospitalization)
  Sender: FDA-Public Use
  Company Number: US-PFIZER INC-2012007558

PATIENT
  Sex: Male
  Weight: 102.72 kg

DRUGS (6)
  1. LOPERAMIDE [Concomitant]
     Indication: DIARRHOEA
     Dosage: UNK
     Route: 048
     Dates: start: 20100701
  2. PERCOCET [Concomitant]
     Indication: PAIN
     Dosage: UNK
     Route: 048
     Dates: start: 20100101
  3. NEXIUM [Concomitant]
     Indication: GASTROOESOPHAGEAL REFLUX DISEASE
     Dosage: UNK
     Route: 048
     Dates: start: 20100601
  4. ONDANSETRON [Concomitant]
     Indication: NAUSEA
     Dosage: UNK
     Route: 048
     Dates: start: 20100701
  5. LOVENOX [Concomitant]
     Indication: DEEP VEIN THROMBOSIS
     Dosage: ROUTE: SC
     Dates: start: 20060801
  6. CRIZOTINIB [Suspect]
     Indication: ADENOCARCINOMA
     Dosage: 800 MG, 1X/DAY CONTINUOUS
     Dates: start: 20111220, end: 20120109

REACTIONS (1)
  - CEREBROVASCULAR ACCIDENT [None]
